FAERS Safety Report 18076866 (Version 1)
Quarter: 2020Q3

REPORT INFORMATION
  Report Type: Report from Study
  Country: CA (occurrence: CA)
  Receive Date: 20200727
  Receipt Date: 20200727
  Transmission Date: 20201103
  Serious: Yes (Other)
  Sender: FDA-Public Use
  Company Number: CA-JNJFOC-20191139180

PATIENT
  Age: 17 Year
  Sex: Female
  Weight: 67.13 kg

DRUGS (2)
  1. REMICADE [Suspect]
     Active Substance: INFLIXIMAB
     Dosage: LAST ADMINISTRATION ON 25?NOV?2019, FIFTH INFUSION
     Route: 042
     Dates: start: 20191125
  2. REMICADE [Suspect]
     Active Substance: INFLIXIMAB
     Indication: CROHN^S DISEASE
     Route: 042
     Dates: start: 20190715

REACTIONS (2)
  - Therapeutic product effect decreased [Unknown]
  - Crohn^s disease [Recovered/Resolved]
